FAERS Safety Report 9304090 (Version 1)
Quarter: 2012Q4

REPORT INFORMATION
  Report Type: Spontaneous
  Country: IT (occurrence: None)
  Receive Date: 20121210
  Receipt Date: 20121210
  Transmission Date: 20130627
  Serious: Yes (Other)
  Sender: FDA-Public Use
  Company Number: IT-2012-3838

PATIENT
  Age: 82 Year
  Sex: Male
  Weight: 65 kg

DRUGS (1)
  1. NAVELBINE (VINORELBINE TARTRATE) INFUSION [Suspect]
     Indication: PROSTATE CANCER
     Route: 042
     Dates: start: 20120706, end: 20120927

REACTIONS (1)
  - Injection site phlebitis [None]
